FAERS Safety Report 17281906 (Version 1)
Quarter: 2020Q1

REPORT INFORMATION
  Report Type: Spontaneous
  Country: US (occurrence: US)
  Receive Date: 20191229
  Receipt Date: 20191229
  Transmission Date: 20200409
  Serious: Yes (Hospitalization)
  Sender: FDA-Public Use
  Company Number: None

PATIENT
  Age: 59 Year
  Sex: Male
  Weight: 85.3 kg

DRUGS (15)
  1. ALBUTEROL HFA INHALER [Concomitant]
     Active Substance: ALBUTEROL
  2. ONDASTERON [Concomitant]
  3. LIDOCAINE. [Concomitant]
     Active Substance: LIDOCAINE
  4. CITALOPRAM [Concomitant]
     Active Substance: CITALOPRAM HYDROBROMIDE
  5. ASPIRIN. [Concomitant]
     Active Substance: ASPIRIN
  6. NPH INSULIN [Concomitant]
     Active Substance: INSULIN BEEF
  7. LISINOPRIL. [Concomitant]
     Active Substance: LISINOPRIL
  8. ATORVASTATIN [Concomitant]
     Active Substance: ATORVASTATIN
  9. INSULIN LISPRO [Concomitant]
     Active Substance: INSULIN LISPRO
  10. OMEPRAZOLE. [Concomitant]
     Active Substance: OMEPRAZOLE
  11. EZETIMIBE. [Concomitant]
     Active Substance: EZETIMIBE
  12. INSULIN GLARGINE [Concomitant]
     Active Substance: INSULIN GLARGINE
  13. ACETAMINOPHEN-CODEINE [Concomitant]
     Active Substance: ACETAMINOPHEN\CODEINE PHOSPHATE
  14. VARENICLINE TARTRATE [Suspect]
     Active Substance: VARENICLINE TARTRATE
     Dates: end: 20191018
  15. METHOCARBAMOL. [Concomitant]
     Active Substance: METHOCARBAMOL

REACTIONS (2)
  - Localised infection [None]
  - Therapy cessation [None]

NARRATIVE: CASE EVENT DATE: 20181115
